FAERS Safety Report 22112475 (Version 1)
Quarter: 2023Q1

REPORT INFORMATION
  Report Type: Report from Study
  Country: US (occurrence: US)
  Receive Date: 20230319
  Receipt Date: 20230319
  Transmission Date: 20230417
  Serious: Yes (Other)
  Sender: FDA-Public Use
  Company Number: US-Axellia-004657

PATIENT
  Age: 61 Year
  Sex: Male

DRUGS (3)
  1. POLYMYXIN B [Suspect]
     Active Substance: POLYMYXIN B
     Indication: Pneumonia
     Dosage: LOADING DOSE: 25000 IU/KG FOLLOWED BY 15000 IU/KG EVERY 12 HOURS GIVEN OVER A 2-HOUR INFUSION
  2. AMPICILLIN SODIUM\SULBACTAM SODIUM [Suspect]
     Active Substance: AMPICILLIN SODIUM\SULBACTAM SODIUM
     Indication: Pneumonia
     Dosage: HIGH-DOSE (9 G EVERY 8 HOURS AS A PROLONGED INFUSION OVER 4 HOURS)
  3. MINOCYCLINE [Suspect]
     Active Substance: MINOCYCLINE HYDROCHLORIDE
     Indication: Pneumonia
     Dosage: 200 MG EVERY 12 HOURS OVER A 1 HOUR

REACTIONS (2)
  - Pneumonia [Unknown]
  - Drug ineffective for unapproved indication [Unknown]
